FAERS Safety Report 9787808 (Version 1)
Quarter: 2013Q4

REPORT INFORMATION
  Report Type: Spontaneous
  Country: US (occurrence: US)
  Receive Date: 20131230
  Receipt Date: 20131230
  Transmission Date: 20140711
  Serious: No
  Sender: FDA-Public Use
  Company Number: US-PFIZER INC-2013370511

PATIENT
  Age: 62 Year
  Sex: Male
  Weight: 79.37 kg

DRUGS (1)
  1. LYRICA [Suspect]
     Indication: PAIN
     Dosage: 225 MG, 2X/DAY
     Dates: start: 2011, end: 20131219

REACTIONS (1)
  - Pain [Not Recovered/Not Resolved]
